FAERS Safety Report 9706225 (Version 3)
Quarter: 2014Q1

REPORT INFORMATION
  Report Type: Spontaneous
  Country: JP (occurrence: JP)
  Receive Date: 20131125
  Receipt Date: 20140306
  Transmission Date: 20141002
  Serious: Yes (Life-Threatening, Hospitalization, Other)
  Sender: FDA-Public Use
  Company Number: JP-AMGEN-JPNSP2013082129

PATIENT
  Age: 78 Year
  Sex: Male
  Weight: 48 kg

DRUGS (2)
  1. ENBREL [Suspect]
     Indication: RHEUMATOID ARTHRITIS
     Dosage: 25 MG, WEEKLY
     Route: 058
     Dates: start: 20070606, end: 20130215
  2. IDOMETHINE [Concomitant]
     Dosage: UNK
     Route: 062

REACTIONS (2)
  - Gait disturbance [Recovering/Resolving]
  - Arthritis bacterial [Recovered/Resolved with Sequelae]
